FAERS Safety Report 5750459-2 (Version None)
Quarter: 2008Q2

REPORT INFORMATION
  Report Type: 
  Country: None (occurrence: None)
  Receive Date: 20080528
  Receipt Date: 20080212
  Transmission Date: 20081010
  Serious: No
  Sender: FDA-Public Use
  Company Number: US-KINGPHARMUSA00001-K200800199

PATIENT

DRUGS (7)
  1. AVINZA [Suspect]
     Indication: BACK PAIN
     Dosage: 30 MG, QD
     Route: 048
     Dates: start: 20080202, end: 20080205
  2. AVINZA [Suspect]
     Indication: PAIN IN EXTREMITY
  3. NORCO [Concomitant]
     Dosage: 50-80 MG, QD
  4. METFORMIN HCL [Concomitant]
     Indication: DIABETES MELLITUS
  5. NICOTINE [Concomitant]
  6. IBUPROFEN [Concomitant]
  7. SOMA [Concomitant]
     Dosage: 350 MG, BID
     Route: 048

REACTIONS (5)
  - AFFECTIVE DISORDER [None]
  - AGGRESSION [None]
  - HOSTILITY [None]
  - MOOD ALTERED [None]
  - SEDATION [None]
